FAERS Safety Report 9281135 (Version 1)
Quarter: 2013Q2

REPORT INFORMATION
  Report Type: Spontaneous
  Country: US (occurrence: None)
  Receive Date: 20130508
  Receipt Date: 20130508
  Transmission Date: 20140414
  Serious: Yes (Hospitalization)
  Sender: FDA-Public Use
  Company Number: None

PATIENT
  Age: 87 Year
  Sex: Male
  Weight: 74.1 kg

DRUGS (2)
  1. TAMSULOSIN [Suspect]
     Dosage: PM
     Route: 048
     Dates: start: 20121030, end: 20121102
  2. PRAZOSIN [Suspect]
     Route: 048
     Dates: start: 20121101, end: 20121102

REACTIONS (2)
  - Orthostatic hypotension [None]
  - Fall [None]
